FAERS Safety Report 14320653 (Version 2)
Quarter: 2018Q1

REPORT INFORMATION
  Report Type: Spontaneous
  Country: US (occurrence: US)
  Receive Date: 20171222
  Receipt Date: 20180111
  Transmission Date: 20180509
  Serious: No
  Sender: FDA-Public Use
  Company Number: US-MYLANLABS-2017M1077522

PATIENT
  Age: 6 Month

DRUGS (1)
  1. GASTROCROM [Suspect]
     Active Substance: CROMOLYN SODIUM
     Dosage: UNK
     Route: 048
     Dates: start: 2017

REACTIONS (2)
  - No adverse event [Unknown]
  - Drug prescribing error [Unknown]

NARRATIVE: CASE EVENT DATE: 2017
